FAERS Safety Report 23896455 (Version 1)
Quarter: 2024Q2

REPORT INFORMATION
  Report Type: Report from Study
  Country: MY (occurrence: MY)
  Receive Date: 20240524
  Receipt Date: 20240524
  Transmission Date: 20240716
  Serious: Yes (Death, Hospitalization)
  Sender: FDA-Public Use
  Company Number: MY-Eisai-EC-2024-166461

PATIENT
  Age: 63 Year
  Sex: Male

DRUGS (1)
  1. LENVIMA [Suspect]
     Active Substance: LENVATINIB
     Indication: Hepatocellular carcinoma
     Route: 048
     Dates: start: 202312

REACTIONS (2)
  - Somnolence [Fatal]
  - Asthenia [Fatal]

NARRATIVE: CASE EVENT DATE: 20231201
